FAERS Safety Report 6433138-8 (Version None)
Quarter: 2009Q4

REPORT INFORMATION
  Report Type: 
  Country: None (occurrence: None)
  Receive Date: 20091109
  Receipt Date: 20091030
  Transmission Date: 20100525
  Serious: Yes (Hospitalization)
  Sender: FDA-Public Use
  Company Number: AU-BRISTOL-MYERS SQUIBB COMPANY-14775589

PATIENT
  Age: 75 Year
  Sex: Male

DRUGS (5)
  1. CARBOPLATIN [Suspect]
     Indication: NON-SMALL CELL LUNG CANCER
     Dosage: 1DF-467 UNITS NOT MENTIONED
     Route: 042
     Dates: start: 20090902, end: 20090923
  2. PACLITAXEL [Suspect]
     Indication: NON-SMALL CELL LUNG CANCER
     Route: 042
     Dates: start: 20090902, end: 20090923
  3. METOPROLOL [Concomitant]
     Dates: start: 20070101
  4. PLAVIX [Concomitant]
     Dates: start: 20020101
  5. SENNA [Concomitant]
     Dates: start: 20090908, end: 20090908

REACTIONS (2)
  - DIARRHOEA [None]
  - MYELITIS [None]
